FAERS Safety Report 7917277-8 (Version None)
Quarter: 2011Q4

REPORT INFORMATION
  Report Type: 
  Country: None (occurrence: None)
  Receive Date: 20111116
  Receipt Date: 20111107
  Transmission Date: 20120403
  Serious: No
  Sender: FDA-Public Use
  Company Number: PHHY2011BR72840

PATIENT
  Age: 49 Year
  Sex: Female

DRUGS (3)
  1. CATAFLAM [Suspect]
     Indication: BLADDER PAIN
     Dosage: 75 MG, 1 SUPPOSITORY DAILY
     Route: 054
     Dates: start: 20110330
  2. MORPHINE SULFATE [Suspect]
  3. DICLOFENAC SODIUM [Suspect]
     Indication: BLADDER PAIN
     Dosage: 50 MG, 2 SUPPOSITORIES DAILY
     Route: 054

REACTIONS (1)
  - BLADDER PAIN [None]
